FAERS Safety Report 14652859 (Version 1)
Quarter: 2018Q1

REPORT INFORMATION
  Report Type: Spontaneous
  Country: FR (occurrence: FR)
  Receive Date: 20180319
  Receipt Date: 20180319
  Transmission Date: 20180509
  Serious: Yes (Other)
  Sender: FDA-Public Use
  Company Number: FR-IPSEN BIOPHARMACEUTICALS, INC.-2018-03815

PATIENT
  Age: 79 Year
  Sex: Male

DRUGS (8)
  1. ACIDE FOLINIQUE [Suspect]
     Active Substance: LEUCOVORIN
     Indication: COLORECTAL CANCER
     Dosage: NOT REPORTED
     Route: 042
     Dates: start: 20160112
  2. ZOPHREN [Concomitant]
     Active Substance: ONDANSETRON
  3. PEGYLATED LIPOSOMAL IRINOTECAN [Suspect]
     Active Substance: IRINOTECAN HYDROCHLORIDE
     Indication: COLORECTAL CANCER
     Dosage: NOT REPORTED
     Route: 042
     Dates: start: 20171011
  4. PEGYLATED LIPOSOMAL IRINOTECAN [Suspect]
     Active Substance: IRINOTECAN HYDROCHLORIDE
     Indication: OFF LABEL USE
  5. FLUOROURACIL. [Suspect]
     Active Substance: FLUOROURACIL
     Indication: COLORECTAL CANCER
     Dosage: NOT REPORTED
     Route: 042
     Dates: start: 20160112
  6. SOLU-MEDROL [Concomitant]
     Active Substance: METHYLPREDNISOLONE SODIUM SUCCINATE
  7. AVASTIN [Suspect]
     Active Substance: BEVACIZUMAB
     Indication: COLORECTAL CANCER
     Dosage: NOT REPORTED
     Route: 042
     Dates: start: 20171011, end: 20171207
  8. TRANXENE [Concomitant]
     Active Substance: CLORAZEPATE DIPOTASSIUM

REACTIONS (3)
  - Complication associated with device [Recovering/Resolving]
  - Off label use [Unknown]
  - Ulcer [Recovering/Resolving]

NARRATIVE: CASE EVENT DATE: 20171215
